FAERS Safety Report 5664765-3 (Version None)
Quarter: 2008Q1

REPORT INFORMATION
  Report Type: 
  Country: None (occurrence: None)
  Receive Date: 20080314
  Receipt Date: 20080228
  Transmission Date: 20080703
  Serious: Yes (Hospitalization)
  Sender: FDA-Public Use
  Company Number: JP-AMGEN-US268083

PATIENT
  Age: 72 Year
  Sex: Female

DRUGS (5)
  1. ENBREL [Suspect]
     Indication: RHEUMATOID ARTHRITIS
     Dosage: UNSPECIFIED
     Route: 058
     Dates: start: 20070201, end: 20080201
  2. RIMATIL [Concomitant]
     Dosage: UNSPECIFIED
     Route: 048
  3. PREDNISOLONE [Concomitant]
  4. ELCATONIN [Concomitant]
     Dosage: UNSPECIFIED
     Route: 042
  5. METHOTREXATE [Concomitant]
     Dosage: UNSPECIFIED
     Route: 048

REACTIONS (2)
  - CARDIAC FAILURE [None]
  - COMPRESSION FRACTURE [None]
